FAERS Safety Report 12758555 (Version 1)
Quarter: 2016Q3

REPORT INFORMATION
  Report Type: Spontaneous
  Country: US (occurrence: US)
  Receive Date: 20160919
  Receipt Date: 20160919
  Transmission Date: 20161109
  Serious: No
  Sender: FDA-Public Use
  Company Number: US-LEO PHARMA-243862

PATIENT
  Sex: Female

DRUGS (1)
  1. PICATO [Suspect]
     Active Substance: INGENOL MEBUTATE
     Indication: ACTINIC KERATOSIS
     Route: 061
     Dates: start: 20160906, end: 20160908

REACTIONS (4)
  - Application site erythema [Not Recovered/Not Resolved]
  - Drug administered at inappropriate site [Unknown]
  - Application site vesicles [Not Recovered/Not Resolved]
  - Application site exfoliation [Not Recovered/Not Resolved]
